FAERS Safety Report 8099674-6 (Version None)
Quarter: 2012Q1

REPORT INFORMATION
  Report Type: 
  Country: None (occurrence: None)
  Receive Date: 20120129
  Receipt Date: 20111007
  Transmission Date: 20120608
  Serious: No
  Sender: FDA-Public Use
  Company Number: US-ABBOTT-11P-163-0862317-00

PATIENT
  Age: 77 Year
  Sex: Female

DRUGS (8)
  1. HUMIRA [Suspect]
     Indication: RHEUMATOID ARTHRITIS
     Dates: start: 20110501
  2. ATENOLOL [Concomitant]
     Indication: PRODUCT USED FOR UNKNOWN INDICATION
  3. ZOCOR [Concomitant]
     Indication: PRODUCT USED FOR UNKNOWN INDICATION
     Dosage: ONE AT NIGHT
  4. SYNTHROID [Concomitant]
     Dosage: 1000 MCG TUES, THURS, AND SUNDAY
  5. SYNTHROID [Concomitant]
     Dosage: REST OF THE DAYS OF THE WEEK
  6. VITAMIN D [Concomitant]
     Indication: PRODUCT USED FOR UNKNOWN INDICATION
  7. SYNTHROID [Concomitant]
     Indication: PRODUCT USED FOR UNKNOWN INDICATION
     Dosage: 88 MCG MONDAY, WEDNESDAY, FRIDAY
  8. LORAZEPAM [Concomitant]
     Indication: ANXIETY
     Dosage: 1 MG AT NIGHT AND AS NEEDED

REACTIONS (3)
  - HEADACHE [None]
  - DIARRHOEA [None]
  - MALAISE [None]
